FAERS Safety Report 23335689 (Version 1)
Quarter: 2023Q4

REPORT INFORMATION
  Report Type: Spontaneous
  Country: US (occurrence: US)
  Receive Date: 20231225
  Receipt Date: 20231225
  Transmission Date: 20240109
  Serious: Yes (Other)
  Sender: FDA-Public Use
  Company Number: US-TEVA-VS-3137603

PATIENT
  Age: 26 Year

DRUGS (1)
  1. SPIRONOLACTONE [Suspect]
     Active Substance: SPIRONOLACTONE
     Indication: Acne
     Route: 065

REACTIONS (2)
  - Acute kidney injury [Recovered/Resolved]
  - Myoglobinuria [Recovered/Resolved]
